FAERS Safety Report 19193853 (Version 1)
Quarter: 2021Q2

REPORT INFORMATION
  Report Type: Spontaneous
  Country: US (occurrence: US)
  Receive Date: 20210429
  Receipt Date: 20210429
  Transmission Date: 20210717
  Serious: Yes (Other)
  Sender: FDA-Public Use
  Company Number: US-BAYER-2021-131383

PATIENT
  Age: 25 Year
  Sex: Female

DRUGS (1)
  1. KYLEENA [Suspect]
     Active Substance: LEVONORGESTREL
     Indication: CONTRACEPTION
     Dosage: 17.5?G PER DAY, CONTINUOUSLY
     Route: 015
     Dates: start: 20210326, end: 20210416

REACTIONS (4)
  - Genital haemorrhage [None]
  - Device dislocation [Recovered/Resolved]
  - Patient-device incompatibility [None]
  - Abdominal pain lower [None]

NARRATIVE: CASE EVENT DATE: 20210326
